FAERS Safety Report 12477674 (Version 4)
Quarter: 2016Q3

REPORT INFORMATION
  Report Type: Report from Study
  Country: CY (occurrence: CY)
  Receive Date: 20160617
  Receipt Date: 20160816
  Transmission Date: 20161109
  Serious: Yes (Other)
  Sender: FDA-Public Use
  Company Number: CY-APOPHARMA USA, INC.-2016AP009080

PATIENT
  Age: 1 Year
  Sex: Female
  Weight: 11.5 kg

DRUGS (2)
  1. DEFERIPRONE [Suspect]
     Active Substance: DEFERIPRONE
     Indication: THALASSAEMIA BETA
     Dosage: 280 MG, TID
     Route: 048
     Dates: start: 20160407, end: 20160407
  2. DEFERIPRONE [Suspect]
     Active Substance: DEFERIPRONE
     Dosage: 280 MG, TID
     Route: 048
     Dates: start: 20160426

REACTIONS (3)
  - Viral infection [Recovered/Resolved]
  - Neutropenia [Recovered/Resolved]
  - Hepatic enzyme increased [Recovered/Resolved]

NARRATIVE: CASE EVENT DATE: 20160211
